FAERS Safety Report 6441674-3 (Version None)
Quarter: 2009Q4

REPORT INFORMATION
  Report Type: 
  Country: None (occurrence: None)
  Receive Date: 20091116
  Receipt Date: 20091103
  Transmission Date: 20100525
  Serious: Yes (Other)
  Sender: FDA-Public Use
  Company Number: US-SANOFI-AVENTIS-200918902US

PATIENT
  Age: 64 Year
  Sex: Male

DRUGS (3)
  1. SOLOSTAR [Suspect]
     Dosage: DOSE:28 UNIT(S)
     Route: 058
     Dates: start: 20090601
  2. LANTUS [Suspect]
     Dosage: DOSE:28 UNIT(S)
     Route: 058
     Dates: start: 20090601
  3. NO MENTION OF CONCOMITANT MEDICATIONS [Concomitant]

REACTIONS (1)
  - HYPOGLYCAEMIA [None]
